FAERS Safety Report 9190727 (Version 2)
Quarter: 2013Q2

REPORT INFORMATION
  Report Type: Spontaneous
  Country: US (occurrence: US)
  Receive Date: 20130326
  Receipt Date: 20130402
  Transmission Date: 20140414
  Serious: Yes (Other)
  Sender: FDA-Public Use
  Company Number: US-GILEAD-2013-0070094

PATIENT
  Age: 18 Year
  Sex: Female

DRUGS (1)
  1. COMPLERA [Suspect]
     Indication: HIV INFECTION
     Dosage: UNK
     Dates: start: 20120425, end: 20130116

REACTIONS (5)
  - Genotype drug resistance test positive [Unknown]
  - Genotype drug resistance test positive [Unknown]
  - Genotype drug resistance test positive [Unknown]
  - Genotype drug resistance test positive [Unknown]
  - Viral load increased [Recovering/Resolving]
